FAERS Safety Report 7771536-0 (Version None)
Quarter: 2011Q3

REPORT INFORMATION
  Report Type: 
  Country: None (occurrence: None)
  Receive Date: 20110922
  Receipt Date: 20110413
  Transmission Date: 20111222
  Serious: No
  Sender: FDA-Public Use
  Company Number: US-ASTRAZENECA-2010SE04219

PATIENT
  Age: 52 Year
  Sex: Male
  Weight: 158.8 kg

DRUGS (14)
  1. ASPIRIN [Concomitant]
     Dates: start: 20070401
  2. AMBIEN [Concomitant]
     Dates: start: 20030101
  3. ALLOPURINOL [Concomitant]
     Dates: start: 20030101
  4. PRINIVIL [Concomitant]
     Dates: start: 20070401
  5. SEROQUEL [Suspect]
     Indication: DEPRESSION
     Dosage: 25 MG 1-2-3 AT 8 PM- 100 MG
     Route: 048
     Dates: start: 20030207
  6. SEROQUEL [Suspect]
     Route: 048
     Dates: start: 20030401
  7. TRICOR [Concomitant]
     Dates: start: 20070401
  8. PAXIL [Concomitant]
     Dates: start: 20030101
  9. ATENOLOL [Concomitant]
     Dates: start: 20030101
  10. PROCARDIA XL [Concomitant]
     Dates: start: 20070401
  11. TENORETIC 100 [Concomitant]
     Dosage: 100/25 QAM
     Dates: start: 20070401
  12. VYTORIN [Concomitant]
     Dosage: 10/40 MG HS
     Dates: start: 20070401
  13. EFFEXOR XR [Concomitant]
     Dates: start: 20070401
  14. DEPAKOTE [Concomitant]
     Dates: start: 20030207

REACTIONS (8)
  - BACK INJURY [None]
  - OBESITY [None]
  - HYPERLIPIDAEMIA [None]
  - WEIGHT INCREASED [None]
  - BLOOD TRIGLYCERIDES INCREASED [None]
  - BACK PAIN [None]
  - TYPE 2 DIABETES MELLITUS [None]
  - GLUCOSE TOLERANCE IMPAIRED [None]
